FAERS Safety Report 9753111 (Version 2)
Quarter: 2015Q3

REPORT INFORMATION
  Report Type: Spontaneous
  Country: US (occurrence: US)
  Receive Date: 20131213
  Receipt Date: 20150805
  Transmission Date: 20151125
  Serious: No
  Sender: FDA-Public Use
  Company Number: US-GILEAD-2010-0027220

PATIENT
  Age: 71 Year
  Sex: Male
  Weight: 61.23 kg

DRUGS (12)
  1. OXYGEN. [Concomitant]
     Active Substance: OXYGEN
  2. REVATIO [Concomitant]
     Active Substance: SILDENAFIL CITRATE
     Indication: PULMONARY ARTERIAL HYPERTENSION
     Dates: start: 20080321
  3. DETROL [Concomitant]
     Active Substance: TOLTERODINE TARTRATE
  4. PROTONIX [Concomitant]
     Active Substance: PANTOPRAZOLE SODIUM
  5. VIAGRA [Concomitant]
     Active Substance: SILDENAFIL CITRATE
  6. ASPIRIN. [Concomitant]
     Active Substance: ASPIRIN
  7. LASIX [Concomitant]
     Active Substance: FUROSEMIDE
  8. ALBUTEROL. [Concomitant]
     Active Substance: ALBUTEROL
  9. LETAIRIS [Suspect]
     Active Substance: AMBRISENTAN
     Indication: PULMONARY ARTERIAL HYPERTENSION
     Route: 048
     Dates: start: 20080214
  10. STOOL SOFTNER [Concomitant]
  11. XANAX [Concomitant]
     Active Substance: ALPRAZOLAM
  12. SPIRIVA [Concomitant]
     Active Substance: TIOTROPIUM BROMIDE MONOHYDRATE

REACTIONS (2)
  - Secretion discharge [Unknown]
  - Nasal dryness [Unknown]
